FAERS Safety Report 8894212 (Version 1)
Quarter: 2012Q4

REPORT INFORMATION
  Report Type: 
  Country: US (occurrence: US)
  Receive Date: 20121107
  Receipt Date: 20121107
  Transmission Date: 20130627
  Serious: No
  Sender: FDA-Public Use
  Company Number: US-AMGEN-USASP2011059732

PATIENT
  Sex: Male

DRUGS (3)
  1. ENBREL [Suspect]
     Indication: RHEUMATOID ARTHRITIS
     Dosage: 25 mg, 2 times/wk
     Dates: start: 2007, end: 2009
  2. LEFLUNOMIDE [Concomitant]
     Dosage: 1 mg, qd
     Dates: start: 2009
  3. METHOTREXATE [Concomitant]
     Dosage: 1 mg, qwk
     Dates: start: 1991

REACTIONS (1)
  - Rheumatoid arthritis [Not Recovered/Not Resolved]
